FAERS Safety Report 6429610-7 (Version None)
Quarter: 2009Q4

REPORT INFORMATION
  Report Type: 
  Country: None (occurrence: None)
  Receive Date: 20091103
  Receipt Date: 20091019
  Transmission Date: 20100525
  Serious: Yes (Death)
  Sender: FDA-Public Use
  Company Number: 02100-JPN-06-0245

PATIENT
  Age: 81 Year
  Sex: Male
  Weight: 69 kg

DRUGS (2)
  1. PLETAL [Suspect]
     Indication: CEREBRAL INFARCTION
     Dosage: 100 MG, BID ORAL
     Route: 048
     Dates: start: 20041120, end: 20041122
  2. LENDORM [Concomitant]

REACTIONS (4)
  - FALL [None]
  - HYPERTENSION [None]
  - RESPIRATORY ARREST [None]
  - SUDDEN DEATH [None]
